FAERS Safety Report 5670228-1 (Version None)
Quarter: 2008Q1

REPORT INFORMATION
  Report Type: 
  Country: None (occurrence: None)
  Receive Date: 20080314
  Receipt Date: 20080314
  Transmission Date: 20080703
  Serious: Yes (Other)
  Sender: FDA-Public Use
  Company Number: None

PATIENT
  Age: 62 Year
  Sex: Female
  Weight: 63.3 kg

DRUGS (1)
  1. NABUMETONE [Suspect]
     Indication: DRUG THERAPY
     Dosage: 750 MG
     Dates: start: 20050101

REACTIONS (2)
  - NAUSEA [None]
  - VOMITING [None]
